FAERS Safety Report 6438506-6 (Version None)
Quarter: 2009Q4

REPORT INFORMATION
  Report Type: 
  Country: None (occurrence: None)
  Receive Date: 20091110
  Receipt Date: 20091027
  Transmission Date: 20100525
  Serious: Yes (Other)
  Sender: FDA-Public Use
  Company Number: 2009268638

PATIENT
  Age: 60 Year
  Sex: Female

DRUGS (1)
  1. FRAGMIN [Suspect]
     Indication: CEREBROVASCULAR ACCIDENT

REACTIONS (2)
  - PARALYSIS [None]
  - VISUAL IMPAIRMENT [None]
